FAERS Safety Report 6357520-2 (Version None)
Quarter: 2009Q3

REPORT INFORMATION
  Report Type: 
  Country: None (occurrence: None)
  Receive Date: 20090916
  Receipt Date: 20070313
  Transmission Date: 20100115
  Serious: Yes (Hospitalization)
  Sender: FDA-Public Use
  Company Number: US-ASTRAZENECA-2009SE11948

PATIENT
  Age: 60 Year
  Sex: Female
  Weight: 93.9 kg

DRUGS (15)
  1. SEROQUEL [Suspect]
     Dosage: 25-450 MG
     Route: 048
     Dates: start: 20011023
  2. XANAX [Concomitant]
     Dosage: 0.25 MG EVERY 6-8 HOURS
     Route: 048
     Dates: start: 19941114
  3. LITHIUM CARBONATE [Concomitant]
     Dosage: 900-1200 MG
     Route: 048
     Dates: start: 19941114
  4. ZOLOFT [Concomitant]
     Dosage: 50-100 MG
     Route: 048
     Dates: start: 19951031
  5. TRAZODONE [Concomitant]
     Dates: start: 19941114, end: 19950117
  6. PROCARDIA [Concomitant]
     Route: 048
     Dates: start: 19951105
  7. DEPAKOTE [Concomitant]
     Dosage: 250-1500 MG
     Dates: start: 20010116
  8. SERZONE [Concomitant]
     Dosage: 200-300 MG
     Dates: start: 20010116
  9. LIPITOR [Concomitant]
     Dosage: 10-20 MG
     Dates: start: 20040330
  10. ATIVAN [Concomitant]
     Indication: ANXIETY
     Dates: start: 19930210
  11. LISINOPRIL [Concomitant]
     Indication: RENAL DISORDER
     Dates: start: 20041022
  12. LISINOPRIL [Concomitant]
     Indication: BLOOD PRESSURE
     Dates: start: 20041022
  13. AMOXICILLIN [Concomitant]
     Dates: start: 19930210
  14. ZOCOR [Concomitant]
     Dates: start: 20030516
  15. CLONAZEPAM [Concomitant]
     Dosage: 0.5-1 MG
     Dates: start: 20050107

REACTIONS (31)
  - ACUTE SINUSITIS [None]
  - ANAEMIA [None]
  - ANGINA UNSTABLE [None]
  - ARTERIOSCLEROSIS CORONARY ARTERY [None]
  - ARTHRALGIA [None]
  - ATRIAL FIBRILLATION [None]
  - CEREBROVASCULAR ACCIDENT [None]
  - CHEST PAIN [None]
  - CHRONIC SINUSITIS [None]
  - COLONIC POLYP [None]
  - CONVULSION [None]
  - CORONARY ARTERY DISEASE [None]
  - DELIRIUM [None]
  - DIABETES MELLITUS INADEQUATE CONTROL [None]
  - DIVERTICULUM [None]
  - ESSENTIAL HYPERTENSION [None]
  - GASTRITIS [None]
  - HEPATIC STEATOSIS [None]
  - HYPERCHOLESTEROLAEMIA [None]
  - HYPERLIPIDAEMIA [None]
  - HYPERVENTILATION [None]
  - IRON DEFICIENCY ANAEMIA [None]
  - ISCHAEMIA [None]
  - OVERDOSE [None]
  - PARKINSON'S DISEASE [None]
  - PERIPHERAL VASCULAR DISORDER [None]
  - PERSONALITY DISORDER [None]
  - SLEEP APNOEA SYNDROME [None]
  - THYROID NEOPLASM [None]
  - TRANSIENT ISCHAEMIC ATTACK [None]
  - VERTIGO [None]
